FAERS Safety Report 13534353 (Version 3)
Quarter: 2017Q2

REPORT INFORMATION
  Report Type: Report from Study
  Country: BR (occurrence: BR)
  Receive Date: 20170510
  Receipt Date: 20170613
  Transmission Date: 20170830
  Serious: Yes (Hospitalization)
  Sender: FDA-Public Use
  Company Number: PHHY2017BR064971

PATIENT
  Sex: Female
  Weight: 75 kg

DRUGS (7)
  1. FORASEQ [Suspect]
     Active Substance: BUDESONIDE\FORMOTEROL FUMARATE
     Indication: ASTHMA
     Dosage: 2 DF (BUDESONIDE 400 UG/ FORMOTEROL FUMARATE 12 UG), QD
     Route: 055
  2. MIFLASONE [Suspect]
     Active Substance: BECLOMETHASONE DIPROPIONATE
     Indication: DYSPNOEA
     Dosage: 1 DF, QD
     Route: 055
  3. MIFLASONE [Suspect]
     Active Substance: BECLOMETHASONE DIPROPIONATE
     Indication: ASTHMA
  4. MIFLASONE [Suspect]
     Active Substance: BECLOMETHASONE DIPROPIONATE
     Indication: BRONCHITIS
  5. FORADIL [Suspect]
     Active Substance: FORMOTEROL FUMARATE
     Indication: ASTHMA
     Dosage: 1 DF, QD
     Route: 055
  6. FORASEQ [Suspect]
     Active Substance: BUDESONIDE\FORMOTEROL FUMARATE
     Indication: DYSPNOEA
     Dosage: 1 DF (BUDESONIDE 400 UG/ FORMOTEROL FUMARATE 12 UG), QD
     Route: 055
  7. FORASEQ [Suspect]
     Active Substance: BUDESONIDE\FORMOTEROL FUMARATE
     Indication: BRONCHITIS

REACTIONS (4)
  - Sneezing [Unknown]
  - Drug ineffective [Unknown]
  - Asthma [Unknown]
  - Dyspnoea [Unknown]
